FAERS Safety Report 18367425 (Version 1)
Quarter: 2020Q4

REPORT INFORMATION
  Report Type: Spontaneous
  Country: JP (occurrence: JP)
  Receive Date: 20201009
  Receipt Date: 20201009
  Transmission Date: 20210114
  Serious: No
  Sender: FDA-Public Use
  Company Number: JP-JNJFOC-20200944624

PATIENT

DRUGS (3)
  1. DUROTEP [Suspect]
     Active Substance: FENTANYL
  2. DUROTEP [Suspect]
     Active Substance: FENTANYL
     Indication: PAIN
     Dosage: 25MCG/HR
     Route: 062
  3. DUROTEP [Suspect]
     Active Substance: FENTANYL

REACTIONS (3)
  - Off label use [Unknown]
  - Incorrect product administration duration [Unknown]
  - Product adhesion issue [Unknown]
